FAERS Safety Report 9454793 (Version 1)
Quarter: 2013Q3

REPORT INFORMATION
  Report Type: Spontaneous
  Country: CA (occurrence: CA)
  Receive Date: 20130812
  Receipt Date: 20130812
  Transmission Date: 20140515
  Serious: Yes (Hospitalization, Other)
  Sender: FDA-Public Use
  Company Number: CA-MYLANLABS-2013S1017053

PATIENT
  Age: 89 Year
  Sex: Female

DRUGS (2)
  1. FENTANYL MATRIX TRANSDERMAL SYSTEM [Suspect]
     Indication: PAIN
     Dosage: Q 72 H
     Route: 062
  2. FENTANYL MATRIX TRANSDERMAL SYSTEM [Suspect]
     Dosage: Q 72 H
     Route: 062
     Dates: end: 201307

REACTIONS (1)
  - Depressed level of consciousness [Not Recovered/Not Resolved]
